FAERS Safety Report 7309386-1 (Version None)
Quarter: 2011Q1

REPORT INFORMATION
  Report Type: 
  Country: None (occurrence: None)
  Receive Date: 20110223
  Receipt Date: 20110210
  Transmission Date: 20110831
  Serious: Yes (Hospitalization)
  Sender: FDA-Public Use
  Company Number: US-ELI_LILLY_AND_COMPANY-US201102004194

PATIENT
  Age: 84 Year
  Sex: Female

DRUGS (2)
  1. ALIMTA [Suspect]
     Dosage: 100 MG, UNK
  2. CARBOPLATIN [Concomitant]

REACTIONS (3)
  - FATIGUE [None]
  - ASTHENIA [None]
  - DIET REFUSAL [None]
